FAERS Safety Report 21423542 (Version 1)
Quarter: 2022Q4

REPORT INFORMATION
  Report Type: Spontaneous
  Country: CN (occurrence: CN)
  Receive Date: 20221007
  Receipt Date: 20221007
  Transmission Date: 20230113
  Serious: Yes (Other)
  Sender: FDA-Public Use
  Company Number: CN-JNJFOC-20220962570

PATIENT
  Sex: Male

DRUGS (1)
  1. ERLEADA [Suspect]
     Active Substance: APALUTAMIDE
     Indication: Product used for unknown indication
     Route: 048

REACTIONS (9)
  - Acute coronary syndrome [Unknown]
  - Dementia [Unknown]
  - Erythema multiforme [Unknown]
  - Pneumonia [Unknown]
  - Skin disorder [Unknown]
  - Nervous system disorder [Unknown]
  - Cardiac disorder [Unknown]
  - Interstitial lung disease [Unknown]
  - Toxic epidermal necrolysis [Unknown]
